FAERS Safety Report 5771208-8 (Version None)
Quarter: 2008Q2

REPORT INFORMATION
  Report Type: 
  Country: None (occurrence: None)
  Receive Date: 20080613
  Receipt Date: 20080527
  Transmission Date: 20081010
  Serious: No
  Sender: FDA-Public Use
  Company Number: US-ABBOTT-08P-163-0453692-00

PATIENT
  Sex: Female
  Weight: 61.29 kg

DRUGS (4)
  1. HUMIRA [Suspect]
     Indication: PSORIATIC ARTHROPATHY
     Route: 058
     Dates: start: 20061001
  2. HUMIRA [Suspect]
     Indication: PSORIASIS
  3. VENLAFAXINE HCL [Concomitant]
     Indication: ANXIETY
     Route: 048
     Dates: start: 20060101
  4. VENLAFAXINE HCL [Concomitant]
     Indication: DEPRESSION

REACTIONS (3)
  - ACCIDENTAL EXPOSURE [None]
  - INJECTION SITE HAEMORRHAGE [None]
  - MIGRAINE [None]
